FAERS Safety Report 17026428 (Version 1)
Quarter: 2019Q4

REPORT INFORMATION
  Report Type: Spontaneous
  Country: GB (occurrence: IT)
  Receive Date: 20191113
  Receipt Date: 20191113
  Transmission Date: 20200122
  Serious: Yes (Hospitalization)
  Sender: FDA-Public Use
  Company Number: IT-BAYER-2019-198659

PATIENT
  Age: 63 Year
  Sex: Female

DRUGS (1)
  1. CIPROXIN 500 MG [Suspect]
     Active Substance: CIPROFLOXACIN
     Indication: DYSENTERY
     Dosage: 500 MG

REACTIONS (3)
  - Vision blurred [Unknown]
  - Abdominal pain [Unknown]
  - Stupor [Unknown]

NARRATIVE: CASE EVENT DATE: 20190918
